FAERS Safety Report 5027958-4 (Version None)
Quarter: 2006Q2

REPORT INFORMATION
  Report Type: 
  Country: None (occurrence: None)
  Receive Date: 20060609
  Receipt Date: 20060602
  Transmission Date: 20061013
  Serious: Yes (Other)
  Sender: FDA-Public Use
  Company Number: 2006-05-1674

PATIENT
  Age: 10 Year
  Sex: Male
  Weight: 29 kg

DRUGS (5)
  1. PEG-INTRON [Suspect]
     Indication: NEUROFIBROMATOSIS
     Dosage: SEE IMAGE
     Route: 058
     Dates: start: 20050930, end: 20051021
  2. PEG-INTRON [Suspect]
     Indication: NEUROFIBROMATOSIS
     Dosage: SEE IMAGE
     Route: 058
     Dates: start: 20051028, end: 20051104
  3. PEG-INTRON [Suspect]
     Indication: NEUROFIBROMATOSIS
     Dosage: SEE IMAGE
     Route: 058
     Dates: start: 20051111, end: 20051118
  4. TYLENOL (CAPLET) [Concomitant]
  5. IBUPROFEN [Concomitant]

REACTIONS (10)
  - BLOOD SODIUM DECREASED [None]
  - BODY TEMPERATURE INCREASED [None]
  - DRUG TOXICITY [None]
  - DYSKINESIA [None]
  - FRUSTRATION [None]
  - HYPERHIDROSIS [None]
  - MUSCLE TWITCHING [None]
  - MYOCLONUS [None]
  - THERAPY NON-RESPONDER [None]
  - WHITE BLOOD CELL COUNT DECREASED [None]
